FAERS Safety Report 4796737-5 (Version None)
Quarter: 2005Q4

REPORT INFORMATION
  Report Type: 
  Country: None (occurrence: None)
  Receive Date: 20051013
  Receipt Date: 20050615
  Transmission Date: 20060501
  Serious: Yes (Other)
  Sender: FDA-Public Use
  Company Number: 200511782JP

PATIENT
  Age: 8 Month
  Sex: Male

DRUGS (1)
  1. LASIX [Suspect]
     Indication: PNEUMONIA ASPIRATION

REACTIONS (1)
  - HEPATOBLASTOMA [None]
